FAERS Safety Report 9165475 (Version 2)
Quarter: 2013Q2

REPORT INFORMATION
  Report Type: Spontaneous
  Country: US (occurrence: None)
  Receive Date: 20130301
  Receipt Date: 20130415
  Transmission Date: 20140414
  Serious: Yes (Hospitalization)
  Sender: FDA-Public Use
  Company Number: 2013-0850

PATIENT
  Age: 69 Year
  Sex: Female
  Weight: 77.1 kg

DRUGS (8)
  1. DYSPORT (BOTULINUM TOXIN TYPE A) (BOTULINUM TOXIN TYPE A) [Suspect]
     Indication: SKIN WRINKLING
     Dosage: 100 UNITS (100 UNITS, 1 IN 1 CYCLE (S)), UNKNOWN
     Dates: start: 20130201, end: 20130201
  2. DYSPORT (BOTULINUM TOXIN TYPE A) (BOTULINUM TOXIN TYPE A) [Suspect]
     Indication: SKIN WRINKLING
     Dosage: 100 UNITS (100 UNITS, 1 IN 1 CYCLE (S)), UNKNOWN
     Dates: start: 20130201, end: 20130201
  3. DYSPORT (BOTULINUM TOXIN TYPE A) (BOTULINUM TOXIN TYPE A) [Suspect]
     Indication: SKIN WRINKLING
     Dosage: 100 UNITS (100 UNITS, 1 IN 1 CYCLE (S)), UNKNOWN
     Dates: start: 20130201, end: 20130201
  4. DYSPORT (BOTULINUM TOXIN TYPE A) (BOTULINUM TOXIN TYPE A) [Suspect]
     Indication: OFF LABEL USE
     Dosage: 100 UNITS (100 UNITS, 1 IN 1 CYCLE (S)), UNKNOWN
     Dates: start: 20130201, end: 20130201
  5. RETIN-A (TRETINOIN) [Concomitant]
  6. WARFARIN (WARFARIN) [Concomitant]
  7. VITAMIN B-12 (CYANOCOBALAMIN) [Concomitant]
  8. DEHA (PRASTERONE) [Concomitant]

REACTIONS (3)
  - Respiratory distress [None]
  - Upper respiratory tract infection [None]
  - Concomitant disease aggravated [None]
